FAERS Safety Report 8833299 (Version 1)
Quarter: 2012Q4

REPORT INFORMATION
  Report Type: 
  Country: CO (occurrence: CO)
  Receive Date: 20121010
  Receipt Date: 20121010
  Transmission Date: 20130627
  Serious: Yes (Death)
  Sender: FDA-Public Use
  Company Number: CO-PFIZER INC-2012247637

PATIENT
  Sex: Female

DRUGS (1)
  1. AROMASIN [Suspect]
     Dosage: 25 mg, UNK

REACTIONS (1)
  - Death [Fatal]
